FAERS Safety Report 15185268 (Version 1)
Quarter: 2018Q3

REPORT INFORMATION
  Report Type: Spontaneous
  Country: US (occurrence: US)
  Receive Date: 20180723
  Receipt Date: 20180723
  Transmission Date: 20181010
  Serious: Yes (Hospitalization)
  Sender: FDA-Public Use
  Company Number: US-WALMART-2052610

PATIENT
  Age: 52 Year
  Sex: Male
  Weight: 77.27 kg

DRUGS (1)
  1. EQUATE PEPTIC RELIEF REGULAR STRENGTH ORIGINAL [Suspect]
     Active Substance: BISMUTH SUBSALICYLATE
     Indication: NAUSEA
     Route: 048
     Dates: start: 20180718, end: 20180718

REACTIONS (3)
  - Urticaria [Recovered/Resolved]
  - Pruritus [Recovered/Resolved]
  - Swollen tongue [Recovered/Resolved]
